FAERS Safety Report 6041110-5 (Version None)
Quarter: 2009Q1

REPORT INFORMATION
  Report Type: 
  Country: None (occurrence: None)
  Receive Date: 20090116
  Receipt Date: 20080926
  Transmission Date: 20090719
  Serious: No
  Sender: FDA-Public Use
  Company Number: US-BRISTOL-MYERS SQUIBB COMPANY-14313456

PATIENT
  Age: 27 Year
  Sex: Male
  Weight: 82 kg

DRUGS (3)
  1. ABILIFY [Suspect]
     Indication: BIPOLAR DISORDER
     Dosage: TOOK 28 TABLETS (30CT BOTTLE OF ABILIFY 30MG THAT CONTAINED 10MG TABLETS).
  2. LITHIUM [Concomitant]
  3. SEROQUEL [Concomitant]

REACTIONS (3)
  - ABNORMAL BEHAVIOUR [None]
  - INCORRECT DOSE ADMINISTERED [None]
  - SUICIDAL IDEATION [None]
